FAERS Safety Report 19502820 (Version 1)
Quarter: 2021Q3

REPORT INFORMATION
  Report Type: Report from Study
  Country: US (occurrence: US)
  Receive Date: 20210707
  Receipt Date: 20210707
  Transmission Date: 20211014
  Serious: Yes (Death, Hospitalization)
  Sender: FDA-Public Use
  Company Number: US-BAYER-2021-133246

PATIENT
  Age: 66 Year
  Sex: Male

DRUGS (2)
  1. STIVARGA [Suspect]
     Active Substance: REGORAFENIB
     Indication: COLORECTAL CANCER
     Dosage: 80 MG DAILY
     Route: 048
  2. STIVARGA [Suspect]
     Active Substance: REGORAFENIB
     Indication: COLORECTAL CANCER
     Dosage: 80 MG DAILY
     Route: 048
     Dates: start: 20210423

REACTIONS (7)
  - Death [Fatal]
  - Hospitalisation [None]
  - Nausea [Recovered/Resolved]
  - Asthenia [Not Recovered/Not Resolved]
  - Fatigue [Not Recovered/Not Resolved]
  - Off label use [Not Recovered/Not Resolved]
  - Diarrhoea [Recovered/Resolved]

NARRATIVE: CASE EVENT DATE: 20210423
